FAERS Safety Report 8264181-4 (Version None)
Quarter: 2012Q2

REPORT INFORMATION
  Report Type: 
  Country: None (occurrence: None)
  Receive Date: 20120403
  Receipt Date: 20120322
  Transmission Date: 20120825
  Serious: Yes (Hospitalization)
  Sender: FDA-Public Use
  Company Number: 2012SP016138

PATIENT
  Age: 15 Year
  Sex: Male
  Weight: 72 kg

DRUGS (6)
  1. CELEXA [Concomitant]
  2. COGENTIN [Concomitant]
  3. ASENAPINE [Suspect]
     Indication: SCHIZOPHRENIA
     Dosage: 2.5 MG;BID;SL
     Route: 060
     Dates: start: 20120308, end: 20120317
  4. RISPERIDONE [Concomitant]
  5. IBUPROFEN [Concomitant]
  6. ARIPIPRAZOLE [Concomitant]

REACTIONS (3)
  - PSYCHOTIC DISORDER [None]
  - HEADACHE [None]
  - HALLUCINATION, AUDITORY [None]
